FAERS Safety Report 9356386 (Version 1)
Quarter: 2013Q2

REPORT INFORMATION
  Report Type: Spontaneous
  Country: US (occurrence: None)
  Receive Date: 20130614
  Receipt Date: 20130614
  Transmission Date: 20140414
  Serious: Yes (Disabling, Other)
  Sender: FDA-Public Use
  Company Number: US-1198647

PATIENT
  Sex: Female

DRUGS (1)
  1. NEOMYCIN [Suspect]
     Dosage: (AURICULAR (OTIC))
     Dates: start: 200701, end: 2010

REACTIONS (11)
  - Deafness [None]
  - Hypersensitivity [None]
  - Ear pain [None]
  - Erythema [None]
  - Ear discomfort [None]
  - Auricular swelling [None]
  - Eustachian tube disorder [None]
  - Insomnia [None]
  - Discomfort [None]
  - Emotional distress [None]
  - Pain [None]
